FAERS Safety Report 10024096 (Version 2)
Quarter: 2014Q1

REPORT INFORMATION
  Report Type: Spontaneous
  Country: FR (occurrence: None)
  Receive Date: 20140124
  Receipt Date: 20140331
  Transmission Date: 20141002
  Serious: Yes (Other)
  Sender: FDA-Public Use
  Company Number: AG-2013-016295

PATIENT
  Age: 87 Year
  Sex: Female

DRUGS (3)
  1. CHLORAMBUCIL [Suspect]
     Indication: IMMUNOSUPPRESSION
     Dates: start: 2005
  2. PREDNISOLONE [Suspect]
     Indication: IMMUNOSUPPRESSION
     Dates: start: 2005
  3. CYCLOPHOSPHAMIDE [Suspect]
     Indication: IMMUNOSUPPRESSION
     Dates: start: 2005

REACTIONS (1)
  - Hepatitis B [None]
